FAERS Safety Report 10199441 (Version 1)
Quarter: 2014Q2

REPORT INFORMATION
  Report Type: Spontaneous
  Country: US (occurrence: None)
  Receive Date: 20140523
  Receipt Date: 20140523
  Transmission Date: 20141212
  Serious: No
  Sender: FDA-Public Use
  Company Number: None

PATIENT
  Age: 69 Year
  Sex: Female
  Weight: 86.18 kg

DRUGS (1)
  1. CEFDINIR [Suspect]
     Indication: CELLULITIS
     Dosage: 300 TWICE DAILY TAKEN BY MOUTH
     Route: 048
     Dates: start: 20140513, end: 20140519

REACTIONS (8)
  - Chest pain [None]
  - Palpitations [None]
  - Chills [None]
  - Asthenia [None]
  - Hyperhidrosis [None]
  - Heart rate irregular [None]
  - Dysstasia [None]
  - Feeling abnormal [None]
